FAERS Safety Report 6035868-9 (Version None)
Quarter: 2009Q1

REPORT INFORMATION
  Report Type: 
  Country: None (occurrence: None)
  Receive Date: 20090113
  Receipt Date: 20090106
  Transmission Date: 20090719
  Serious: Yes (Other)
  Sender: FDA-Public Use
  Company Number: CH-BRISTOL-MYERS SQUIBB COMPANY-14437693

PATIENT
  Age: 66 Year
  Sex: Female

DRUGS (9)
  1. ORENCIA [Suspect]
     Indication: RHEUMATOID ARTHRITIS
     Dosage: RECEIVED LAST CYCLE IN OCT-2008
     Route: 042
     Dates: start: 20080708, end: 20080916
  2. PREDNISONE TAB [Concomitant]
  3. IMUREL [Concomitant]
  4. INDOCIN [Concomitant]
     Dosage: 1 DOSAGE FORM = 25MG IN THE MORNING AND 100MG IN THE EVENING
  5. VOLTAREN [Concomitant]
  6. CALCIMAGON [Concomitant]
  7. TRAMADOL HCL [Concomitant]
  8. DAFALGAN [Concomitant]
  9. VITAMIN D3 [Concomitant]

REACTIONS (7)
  - COUGH [None]
  - DYSPNOEA [None]
  - ERYTHEMA [None]
  - HYPERTONIA [None]
  - NAUSEA [None]
  - OEDEMA [None]
  - PAIN IN EXTREMITY [None]
